FAERS Safety Report 16750816 (Version 3)
Quarter: 2019Q4

REPORT INFORMATION
  Report Type: Spontaneous
  Country: IT (occurrence: IT)
  Receive Date: 20190828
  Receipt Date: 20191114
  Transmission Date: 20200122
  Serious: Yes (Other)
  Sender: FDA-Public Use
  Company Number: IT-MYLANLABS-2019M1079951

PATIENT
  Age: 14 Year
  Sex: Female

DRUGS (5)
  1. ADALIMUMAB [Suspect]
     Active Substance: ADALIMUMAB
     Indication: UVEITIS
     Dosage: 24 MILLIGRAM/SQ. METER, Q2W
     Route: 065
  2. PREDNISONE. [Suspect]
     Active Substance: PREDNISONE
     Indication: UVEITIS
     Dosage: 15 MILLIGRAM, QD
     Route: 048
  3. METHOTREXATE. [Suspect]
     Active Substance: METHOTREXATE
     Indication: UVEITIS
     Dosage: 15 MG, WEEKLY
     Route: 065
  4. METHOTREXATE. [Suspect]
     Active Substance: METHOTREXATE
     Indication: UVEITIS
     Dosage: 15 MILLIGRAM/SQ. METER, QW
     Route: 065
  5. INFLIXIMAB [Suspect]
     Active Substance: INFLIXIMAB
     Indication: UVEITIS
     Dosage: 6 MG/KG EVERY 8 WEEKS
     Route: 065

REACTIONS (5)
  - Drug abuse [Unknown]
  - Uveitis [Recovered/Resolved]
  - Off label use [Recovered/Resolved]
  - Rebound effect [Unknown]
  - Drug ineffective [Unknown]
